FAERS Safety Report 17259434 (Version 1)
Quarter: 2020Q1

REPORT INFORMATION
  Report Type: Spontaneous
  Country: US (occurrence: US)
  Receive Date: 20200110
  Receipt Date: 20200110
  Transmission Date: 20200409
  Serious: No
  Sender: FDA-Public Use
  Company Number: US-009507513-2001USA003496

PATIENT
  Sex: Male

DRUGS (1)
  1. PROVENTIL [Suspect]
     Active Substance: ALBUTEROL
     Dosage: 2 PUFFS UP TO FOUR TIMES DAILY AS NEEDED

REACTIONS (4)
  - Product quality issue [Unknown]
  - Poor quality device used [Unknown]
  - Drug ineffective [Unknown]
  - No adverse event [Unknown]
